FAERS Safety Report 6568727-3 (Version None)
Quarter: 2010Q1

REPORT INFORMATION
  Report Type: 
  Country: None (occurrence: None)
  Receive Date: 20100203
  Receipt Date: 20100129
  Transmission Date: 20100710
  Serious: Yes (Other)
  Sender: FDA-Public Use
  Company Number: PHHY2010IT05242

PATIENT

DRUGS (1)
  1. SEBIVO [Suspect]

REACTIONS (2)
  - METASTASES TO BONE [None]
  - PROSTATE CANCER [None]
